FAERS Safety Report 8798745 (Version 2)
Quarter: 2012Q4

REPORT INFORMATION
  Report Type: 
  Country: US (occurrence: US)
  Receive Date: 20120920
  Receipt Date: 20121212
  Transmission Date: 20130627
  Serious: Yes (Other)
  Sender: FDA-Public Use
  Company Number: US-INCYTE CORPORATION-2012IN001795

PATIENT
  Age: 75 None
  Sex: Male
  Weight: 75.28 kg

DRUGS (1)
  1. JAKAFI [Suspect]
     Indication: MYELOFIBROSIS
     Dosage: 10 mg, bid
     Route: 048
     Dates: start: 20120109, end: 20121128

REACTIONS (6)
  - Gastrointestinal haemorrhage [Unknown]
  - Anaemia [Unknown]
  - Haemorrhoidal haemorrhage [Unknown]
  - Splenomegaly [Unknown]
  - Platelet count decreased [Unknown]
  - Ecchymosis [Unknown]
